FAERS Safety Report 5269666-0 (Version None)
Quarter: 2007Q1

REPORT INFORMATION
  Report Type: 
  Country: None (occurrence: None)
  Receive Date: 20061218
  Receipt Date: 20061005
  Transmission Date: 20070707
  Serious: Yes (Other)
  Sender: FDA-Public Use
  Company Number: US200610001180

PATIENT
  Sex: Male

DRUGS (2)
  1. HUMALOG [Suspect]
     Indication: DIABETES MELLITUS
     Dosage: 4U IN AM, 4U AT LUNCH, 4U AT DINNER
     Dates: start: 20060401
  2. HUMULIN N [Suspect]
     Indication: DIABETES MELLITUS
     Dosage: 12U IN AM, 10U IN AM
     Dates: start: 20060401

REACTIONS (3)
  - BLOOD GLUCOSE DECREASED [None]
  - HYPERHIDROSIS [None]
  - LOSS OF CONSCIOUSNESS [None]
